FAERS Safety Report 18848368 (Version 4)
Quarter: 2021Q1

REPORT INFORMATION
  Report Type: Report from Study
  Country: US (occurrence: US)
  Receive Date: 20210204
  Receipt Date: 20210312
  Transmission Date: 20210419
  Serious: Yes (Other)
  Sender: FDA-Public Use
  Company Number: US-ASTRAZENECA-2020SF50906

PATIENT
  Age: 26040 Day
  Sex: Female

DRUGS (6)
  1. LYNPARZA [Suspect]
     Active Substance: OLAPARIB
     Indication: OVARIAN CANCER
     Route: 048
     Dates: start: 202011
  2. ALBUTEROL. [Concomitant]
     Active Substance: ALBUTEROL
     Indication: ASTHMA
     Route: 065
  3. LYNPARZA [Suspect]
     Active Substance: OLAPARIB
     Indication: OVARIAN CANCER
     Route: 048
  4. PREDNISONE. [Concomitant]
     Active Substance: PREDNISONE
     Route: 065
  5. ATIVAN [Concomitant]
     Active Substance: LORAZEPAM
     Route: 065
  6. LYNPARZA [Suspect]
     Active Substance: OLAPARIB
     Indication: OVARIAN CANCER
     Route: 048
     Dates: start: 20200702

REACTIONS (24)
  - Hyperhidrosis [Unknown]
  - COVID-19 [Recovering/Resolving]
  - Headache [Unknown]
  - Pulmonary function test decreased [Unknown]
  - Weight increased [Unknown]
  - Blood pressure increased [Unknown]
  - Appetite disorder [Unknown]
  - Oedema peripheral [Unknown]
  - Flushing [Unknown]
  - Insomnia [Unknown]
  - Chest pain [Not Recovered/Not Resolved]
  - Hypersomnia [Unknown]
  - Anxiety [Unknown]
  - Back pain [Unknown]
  - Pericarditis [Unknown]
  - Pulmonary embolism [Unknown]
  - Vomiting [Recovering/Resolving]
  - Dyspepsia [Unknown]
  - Fatigue [Unknown]
  - Heart rate increased [Unknown]
  - Inflammation [Unknown]
  - Asthma [Unknown]
  - Palpitations [Unknown]
  - Nasopharyngitis [Unknown]

NARRATIVE: CASE EVENT DATE: 20210204
